FAERS Safety Report 11428188 (Version 1)
Quarter: 2015Q3

REPORT INFORMATION
  Report Type: Spontaneous
  Country: US (occurrence: US)
  Receive Date: 20150828
  Receipt Date: 20150828
  Transmission Date: 20151125
  Serious: No
  Sender: FDA-Public Use
  Company Number: US-ROCHE-1261592

PATIENT
  Sex: Male

DRUGS (2)
  1. PEGASYS [Suspect]
     Active Substance: PEGINTERFERON ALFA-2A
     Indication: HEPATITIS C
     Route: 065
     Dates: start: 201302
  2. COPEGUS [Suspect]
     Active Substance: RIBAVIRIN
     Indication: HEPATITIS C
     Route: 065
     Dates: start: 201302

REACTIONS (8)
  - White blood cell count decreased [Unknown]
  - Frustration [Unknown]
  - Agitation [Unknown]
  - Asthenia [Unknown]
  - Localised infection [Unknown]
  - Pain [Unknown]
  - Anger [Unknown]
  - Fatigue [Unknown]
